FAERS Safety Report 8962177 (Version 1)
Quarter: 2012Q4

REPORT INFORMATION
  Report Type: 
  Country: US (occurrence: US)
  Receive Date: 20121212
  Receipt Date: 20121212
  Transmission Date: 20130627
  Serious: No
  Sender: FDA-Public Use
  Company Number: US-PFIZER INC-2012312061

PATIENT
  Sex: Female

DRUGS (4)
  1. CHANTIX [Suspect]
     Indication: SMOKING CESSATION THERAPY
     Dosage: 0.5 mg, 1x/day
     Route: 048
  2. CHANTIX [Suspect]
     Dosage: 0.5 mg, 1x/day
     Route: 048
     Dates: start: 2012, end: 2012
  3. CHANTIX [Suspect]
     Dosage: 1 mg, 2x/day
     Route: 048
     Dates: start: 2012, end: 20121208
  4. XANAX [Concomitant]
     Indication: ANXIETY
     Dosage: UNK

REACTIONS (9)
  - Depression [Unknown]
  - Anxiety [Unknown]
  - Terminal insomnia [Unknown]
  - Insomnia [Unknown]
  - Emotional disorder [Unknown]
  - Crying [Unknown]
  - Anger [Unknown]
  - Frustration [Unknown]
  - Irritability [Unknown]
